FAERS Safety Report 19478074 (Version 1)
Quarter: 2021Q2

REPORT INFORMATION
  Report Type: Spontaneous
  Country: US (occurrence: US)
  Receive Date: 20210630
  Receipt Date: 20210630
  Transmission Date: 20210717
  Serious: No
  Sender: FDA-Public Use
  Company Number: US-MYLANLABS-2021M1033662

PATIENT
  Sex: Female

DRUGS (2)
  1. SALBUTAMOL MYLAN [Suspect]
     Active Substance: ALBUTEROL
     Indication: PRODUCT USED FOR UNKNOWN INDICATION
     Dosage: UNK
  2. WIXELA INHUB [Suspect]
     Active Substance: FLUTICASONE PROPIONATE\SALMETEROL XINAFOATE
     Indication: ASTHMA
     Dosage: UNK
     Route: 055

REACTIONS (8)
  - Illness [Not Recovered/Not Resolved]
  - Asthma [Unknown]
  - Device issue [Unknown]
  - Heart rate irregular [Unknown]
  - Palpitations [Unknown]
  - White blood cell count increased [Unknown]
  - Extrasystoles [Unknown]
  - Cold sweat [Unknown]
